APPROVED DRUG PRODUCT: PROVAL #3
Active Ingredient: ACETAMINOPHEN; CODEINE PHOSPHATE
Strength: 325MG;30MG
Dosage Form/Route: CAPSULE;ORAL
Application: A085685 | Product #001
Applicant: SOLVAY PHARMACEUTICALS
Approved: Approved Prior to Jan 1, 1982 | RLD: No | RS: No | Type: DISCN